FAERS Safety Report 4290255-9 (Version None)
Quarter: 2004Q1

REPORT INFORMATION
  Report Type: 
  Country: None (occurrence: None)
  Receive Date: 20040209
  Receipt Date: 20040130
  Transmission Date: 20041129
  Serious: Yes (Other)
  Sender: FDA-Public Use
  Company Number: 2004001231

PATIENT
  Age: 35 Year
  Sex: Female
  Weight: 77.1115 kg

DRUGS (16)
  1. NEURONTIN [Suspect]
     Indication: CONVULSION
     Dosage: 2400 MG (QID), ORAL
     Route: 048
     Dates: start: 20020101, end: 20040105
  2. NEURONTIN [Suspect]
     Indication: NEUROPATHY
     Dosage: 2400 MG (QID), ORAL
     Route: 048
     Dates: start: 20020101, end: 20040105
  3. NEURONTIN [Suspect]
     Indication: PAIN
     Dosage: 2400 MG (QID), ORAL
     Route: 048
     Dates: start: 20020101, end: 20040105
  4. PREDNISONE [Concomitant]
  5. CLOPIDOGREL BISULFATE [Concomitant]
  6. DIPYRIDAMOLE [Concomitant]
  7. DILTIAZEM [Concomitant]
  8. OMEPRAZOLE [Concomitant]
  9. HYDROCHLOROTHIAZIDE [Concomitant]
  10. HYDROXYZINE HCL [Concomitant]
  11. PROGESTERONE [Concomitant]
  12. METOPROLOL SUCCINATE [Concomitant]
  13. FLUDROCORTISONE ACETATE (FLUDROCORTISONE ACETATE) [Concomitant]
  14. ZOLPIDEM TARTRATE [Concomitant]
  15. FENTANYL [Concomitant]
  16. ALPRAZOLAM [Concomitant]

REACTIONS (5)
  - CONDITION AGGRAVATED [None]
  - DEPRESSION [None]
  - DISTURBANCE IN ATTENTION [None]
  - SUICIDAL IDEATION [None]
  - WEIGHT INCREASED [None]
